FAERS Safety Report 5923807-8 (Version None)
Quarter: 2008Q3

REPORT INFORMATION
  Report Type: 
  Country: None (occurrence: None)
  Receive Date: 20080909
  Receipt Date: 20080703
  Transmission Date: 20090109
  Serious: Yes (Hospitalization)
  Sender: FDA-Public Use
  Company Number: 163-21880-08070223

PATIENT
  Age: 52 Year
  Sex: Male
  Weight: 102.9665 kg

DRUGS (8)
  1. REVLIMID [Suspect]
     Indication: MULTIPLE MYELOMA
     Dosage: 25 MG, X21 DAYS EVERY 28 DAYS, ORAL
     Route: 048
     Dates: start: 20080328
  2. THALOMID [Suspect]
     Indication: MULTIPLE MYELOMA
     Dosage: 100 MG, 1 IN 1 D, ORAL
     Route: 048
     Dates: start: 20080328
  3. DECADRON [Suspect]
     Indication: MULTIPLE MYELOMA
     Dosage: 40 MG, 1 X WEEKLY X 4 WEEKS, ORAL
     Route: 048
     Dates: start: 20080328
  4. BIAXIN [Suspect]
     Indication: MULTIPLE MYELOMA
     Dosage: 500 MG, 2 X DAY FOR 28 DAYS, ORAL
     Route: 048
     Dates: start: 20080328
  5. ASPIRIN [Concomitant]
  6. BACTRIM [Concomitant]
  7. MYCELEX [Concomitant]
  8. NEXIUM [Concomitant]

REACTIONS (1)
  - PYREXIA [None]
